FAERS Safety Report 8259453-3 (Version None)
Quarter: 2012Q2

REPORT INFORMATION
  Report Type: 
  Country: None (occurrence: None)
  Receive Date: 20120404
  Receipt Date: 20120328
  Transmission Date: 20120825
  Serious: Yes (Hospitalization)
  Sender: FDA-Public Use
  Company Number: US-VERTEX PHARMACEUTICALS INC.-AE-2012-004524

PATIENT
  Sex: Male
  Weight: 69.462 kg

DRUGS (4)
  1. PEGASYS [Concomitant]
     Indication: HEPATITIS C
     Route: 058
     Dates: start: 20120229, end: 20120325
  2. RIBAVIRIN [Concomitant]
     Indication: HEPATITIS C
     Dates: start: 20120229, end: 20120319
  3. INCIVEK [Suspect]
     Indication: HEPATITIS C
     Route: 048
     Dates: start: 20120229, end: 20120325
  4. RIBAVIRIN [Concomitant]
     Dates: start: 20120320, end: 20120325

REACTIONS (5)
  - BACK PAIN [None]
  - PANCREATITIS [None]
  - ANAEMIA [None]
  - HEADACHE [None]
  - NAUSEA [None]
